FAERS Safety Report 12631771 (Version 2)
Quarter: 2016Q3

REPORT INFORMATION
  Report Type: Spontaneous
  Country: US (occurrence: US)
  Receive Date: 20160808
  Receipt Date: 20160808
  Transmission Date: 20161109
  Serious: No
  Sender: FDA-Public Use
  Company Number: US-BEH-2016060959

PATIENT
  Age: 67 Year
  Sex: Female
  Weight: 81 kg

DRUGS (18)
  1. POTASSIUM [Concomitant]
     Active Substance: POTASSIUM
  2. TYLENOL [Concomitant]
     Active Substance: ACETAMINOPHEN
  3. PROZAC [Concomitant]
     Active Substance: FLUOXETINE HYDROCHLORIDE
  4. FLONASE [Concomitant]
     Active Substance: FLUTICASONE PROPIONATE
  5. TEGRETOL [Concomitant]
     Active Substance: CARBAMAZEPINE
  6. PROAIR HFA [Concomitant]
     Active Substance: ALBUTEROL SULFATE
  7. KLONOPIN [Concomitant]
     Active Substance: CLONAZEPAM
  8. LIDOCAINE/PRILOCAINE [Concomitant]
     Active Substance: LIDOCAINE\PRILOCAINE
  9. RANITIDINE. [Concomitant]
     Active Substance: RANITIDINE
  10. FLOMAX [Concomitant]
     Active Substance: TAMSULOSIN HYDROCHLORIDE
  11. HIZENTRA [Suspect]
     Active Substance: HUMAN IMMUNOGLOBULIN G
     Indication: IMMUNODEFICIENCY COMMON VARIABLE
     Route: 058
     Dates: start: 20110207
  12. NASONEX [Concomitant]
     Active Substance: MOMETASONE FUROATE
  13. DIPHENHYDRAMINE. [Concomitant]
     Active Substance: DIPHENHYDRAMINE
  14. PULMICORT TURBUHALER [Concomitant]
     Active Substance: BUDESONIDE
  15. TRICOR [Concomitant]
     Active Substance: FENOFIBRATE
  16. EPIPEN [Concomitant]
     Active Substance: EPINEPHRINE
  17. MOTRIN [Concomitant]
     Active Substance: IBUPROFEN
  18. GLUCOSAMINE [Concomitant]
     Active Substance: GLUCOSAMINE

REACTIONS (1)
  - Sinusitis [Unknown]

NARRATIVE: CASE EVENT DATE: 201511
